FAERS Safety Report 8772669 (Version 1)
Quarter: 2012Q4

REPORT INFORMATION
  Report Type: 
  Country: CH (occurrence: CH)
  Receive Date: 20120904
  Receipt Date: 20120904
  Transmission Date: 20130627
  Serious: Yes (Hospitalization)
  Sender: FDA-Public Use
  Company Number: CH-BAYER-2012-091386

PATIENT
  Age: 75 Year
  Sex: Male

DRUGS (3)
  1. ASPIRIN CARDIO [Suspect]
     Dosage: 100 mg, QD
     Route: 048
  2. ELTROXIN [Concomitant]
     Dosage: 0.5 mg, QD
     Route: 048
  3. DAFALGAN [Concomitant]
     Dosage: UNK
     Route: 048

REACTIONS (3)
  - Gastrointestinal haemorrhage [Recovering/Resolving]
  - Anaemia [Recovered/Resolved]
  - Left ventricular failure [None]
